FAERS Safety Report 24328525 (Version 1)
Quarter: 2024Q3

REPORT INFORMATION
  Report Type: Report from Study
  Country: BR (occurrence: BR)
  Receive Date: 20240917
  Receipt Date: 20240917
  Transmission Date: 20241016
  Serious: Yes (Other)
  Sender: ABBVIE
  Company Number: BR-ABBVIE-5922023

PATIENT
  Sex: Female

DRUGS (2)
  1. RINVOQ [Suspect]
     Active Substance: UPADACITINIB
     Indication: Rheumatoid arthritis
     Route: 048
     Dates: start: 20210515
  2. ARAVA [Concomitant]
     Active Substance: LEFLUNOMIDE
     Indication: Product used for unknown indication

REACTIONS (12)
  - Foot operation [Unknown]
  - Skin atrophy [Unknown]
  - Bacterial infection [Unknown]
  - Burning sensation [Unknown]
  - Drug ineffective [Unknown]
  - Pyrexia [Unknown]
  - Pain [Unknown]
  - Pain of skin [Unknown]
  - Necrosis [Unknown]
  - Inflammation [Unknown]
  - Discharge [Unknown]
  - Bone disorder [Unknown]
